APPROVED DRUG PRODUCT: DICYCLOMINE HYDROCHLORIDE
Active Ingredient: DICYCLOMINE HYDROCHLORIDE
Strength: 10MG
Dosage Form/Route: CAPSULE;ORAL
Application: A083179 | Product #001
Applicant: WATSON LABORATORIES INC
Approved: Feb 12, 1986 | RLD: No | RS: No | Type: DISCN